FAERS Safety Report 23327203 (Version 1)
Quarter: 2023Q4

REPORT INFORMATION
  Report Type: Spontaneous
  Country: CN (occurrence: CN)
  Receive Date: 20231221
  Receipt Date: 20231221
  Transmission Date: 20240110
  Serious: Yes (Life-Threatening, Other)
  Sender: FDA-Public Use
  Company Number: CN-PFIZER INC-PV202300204286

PATIENT
  Age: 12 Year
  Sex: Female
  Weight: 48.5 kg

DRUGS (5)
  1. METHOTREXATE SODIUM [Suspect]
     Active Substance: METHOTREXATE SODIUM
     Indication: Chemotherapy
     Dosage: 4.42 G, 1X/DAY
     Route: 041
     Dates: start: 20231108, end: 20231108
  2. EPIRUBICIN HYDROCHLORIDE [Suspect]
     Active Substance: EPIRUBICIN HYDROCHLORIDE
     Indication: Chemotherapy
     Dosage: 37 MG, 1X/DAY
     Route: 041
     Dates: start: 20231111, end: 20231112
  3. RITUXIMAB [Suspect]
     Active Substance: RITUXIMAB
     Indication: Chemotherapy
     Dosage: 558 MG, 1X/DAY
     Route: 041
     Dates: start: 20231107, end: 20231107
  4. CYCLOPHOSPHAMIDE [Suspect]
     Active Substance: CYCLOPHOSPHAMIDE
     Indication: Chemotherapy
     Dosage: 0.29 G, 1X/DAY
     Route: 041
     Dates: start: 20231108, end: 20231112
  5. VINDESINE [Suspect]
     Active Substance: VINDESINE
     Indication: Chemotherapy
     Dosage: 4 MG, 1X/DAY
     Route: 041
     Dates: start: 20231108, end: 20231108

REACTIONS (1)
  - Myelosuppression [Recovering/Resolving]

NARRATIVE: CASE EVENT DATE: 20231120
